FAERS Safety Report 8500000-6 (Version None)
Quarter: 2012Q3

REPORT INFORMATION
  Report Type: 
  Country: None (occurrence: None)
  Receive Date: 20120710
  Receipt Date: 20120628
  Transmission Date: 20120928
  Serious: Yes (Other)
  Sender: FDA-Public Use
  Company Number: CN-BRISTOL-MYERS SQUIBB COMPANY-16722928

PATIENT
  Age: 69 Year
  Sex: Female
  Weight: 55 kg

DRUGS (2)
  1. ESTAZOLAM [Suspect]
     Dosage: 1DF:10TABS.
     Route: 048
     Dates: start: 20120627, end: 20120628
  2. IRBESARTAN [Suspect]
     Indication: HYPERTENSION
     Dosage: 1DF:21TABS ONCE. 150MG/ONCE/DAY ON 27JUN2012 10 TABS ONCE ON 27JUN12-28JUN12
     Route: 048
     Dates: start: 20120627, end: 20120628

REACTIONS (3)
  - INTENTIONAL OVERDOSE [None]
  - DIZZINESS [None]
  - SOMNOLENCE [None]
